FAERS Safety Report 13135301 (Version 2)
Quarter: 2017Q1

REPORT INFORMATION
  Report Type: Spontaneous
  Country: US (occurrence: US)
  Receive Date: 20170120
  Receipt Date: 20170323
  Transmission Date: 20170428
  Serious: Yes (Other)
  Sender: FDA-Public Use
  Company Number: US-CELGENEUS-USA-2017013906

PATIENT
  Age: 72 Year
  Sex: Male
  Weight: 72.64 kg

DRUGS (7)
  1. THALOMID [Suspect]
     Active Substance: THALIDOMIDE
     Indication: PROSTATE CANCER
     Dosage: 50 MILLIGRAM
     Route: 048
     Dates: start: 201209
  2. BACTERIOSTATIC WATER [Concomitant]
     Active Substance: WATER
     Indication: PRODUCT USED FOR UNKNOWN INDICATION
     Dosage: 1 DOSAGE FORMS
     Route: 065
  3. CELEBREX [Suspect]
     Active Substance: CELECOXIB
     Indication: PRODUCT USED FOR UNKNOWN INDICATION
     Route: 065
  4. LEUKINE [Concomitant]
     Active Substance: SARGRAMOSTIM
     Indication: PRODUCT USED FOR UNKNOWN INDICATION
     Dosage: 500 MICROGRAM
     Route: 065
  5. FIRMAGON [Concomitant]
     Active Substance: DEGARELIX ACETATE
     Indication: PRODUCT USED FOR UNKNOWN INDICATION
     Dosage: 80 MILLIGRAM
     Route: 065
  6. THALOMID [Suspect]
     Active Substance: THALIDOMIDE
     Dosage: 50 MILLIGRAM
     Route: 048
     Dates: start: 20160720
  7. CALCIUM [Suspect]
     Active Substance: CALCIUM
     Indication: PRODUCT USED FOR UNKNOWN INDICATION
     Route: 065

REACTIONS (4)
  - Vitamin D increased [Unknown]
  - Chest pain [Unknown]
  - Blood calcium increased [Unknown]
  - Angina pectoris [Unknown]

NARRATIVE: CASE EVENT DATE: 2016
